FAERS Safety Report 9814130 (Version 2)
Quarter: 2014Q1

REPORT INFORMATION
  Report Type: Spontaneous
  Country: US (occurrence: US)
  Receive Date: 20140113
  Receipt Date: 20140113
  Transmission Date: 20141002
  Serious: Yes (Other)
  Sender: FDA-Public Use
  Company Number: US-ASTELLAS-2013US012369

PATIENT
  Age: 72 Year
  Sex: Female

DRUGS (17)
  1. MYRBETRIQ [Suspect]
     Indication: PRODUCT USED FOR UNKNOWN INDICATION
     Dosage: 25 MG, UNKNOWN/D
     Route: 048
     Dates: start: 20131002, end: 20131118
  2. HYDROXYZINE HYDROCHLORIDE [Concomitant]
     Indication: PRURITUS
     Dosage: 1.5 DF, QHS
     Route: 048
     Dates: start: 20131009
  3. NYSTATIN [Concomitant]
     Indication: PRODUCT USED FOR UNKNOWN INDICATION
     Dosage: 100000 UNITS/G, BID
     Route: 061
     Dates: start: 20131003
  4. DIFLUCAN [Concomitant]
     Indication: PRODUCT USED FOR UNKNOWN INDICATION
     Dosage: 150 MG, UNKNOWN/D
     Route: 048
     Dates: start: 20131001
  5. ESTRACE VAGINAL [Concomitant]
     Indication: PRODUCT USED FOR UNKNOWN INDICATION
     Dosage: 0.1 MG/G, 2-3 NIGHTS PER WEEK
     Route: 067
     Dates: start: 20130925
  6. METHENAMINE HIPPURATE [Concomitant]
     Indication: PRODUCT USED FOR UNKNOWN INDICATION
     Dosage: 1 G, UID/QD
     Route: 048
     Dates: start: 20110721
  7. MACROBID                           /00024401/ [Concomitant]
     Indication: PRODUCT USED FOR UNKNOWN INDICATION
     Dosage: 100 MG, QHS
     Route: 048
     Dates: start: 20130703
  8. SINGULAIR [Concomitant]
     Indication: PRODUCT USED FOR UNKNOWN INDICATION
     Dosage: 10 MG, UID/QD
     Route: 048
     Dates: start: 20070406
  9. BUPROPION HYDROCHLORIDE [Concomitant]
     Indication: PRODUCT USED FOR UNKNOWN INDICATION
     Dosage: 75 MG, UID/QD
     Route: 048
     Dates: start: 20130130
  10. CALCITRIOL [Concomitant]
     Indication: PRODUCT USED FOR UNKNOWN INDICATION
     Dosage: 0.25 UG, UID/QD
     Route: 048
     Dates: start: 20130130
  11. CLONAZEPAM [Concomitant]
     Indication: PRODUCT USED FOR UNKNOWN INDICATION
     Dosage: 0.5 MG, UID/QD
     Route: 048
     Dates: start: 20130130
  12. CORTEF                             /00028601/ [Concomitant]
     Indication: PRODUCT USED FOR UNKNOWN INDICATION
     Dosage: 5 MG, UID/QD
     Route: 048
     Dates: start: 20130130
  13. FLONASE [Concomitant]
     Indication: PRODUCT USED FOR UNKNOWN INDICATION
     Dosage: 50 UG, UID/QD
     Route: 045
     Dates: start: 20130130
  14. FLUDROCORTISONE ACETATE [Concomitant]
     Indication: PRODUCT USED FOR UNKNOWN INDICATION
     Dosage: 0.1 MG, UID/QD
     Route: 048
     Dates: start: 20130130
  15. METOPROLOL TARTRATE [Concomitant]
     Indication: PRODUCT USED FOR UNKNOWN INDICATION
     Dosage: 25 MG, UID/QD
     Route: 048
     Dates: start: 20130130
  16. SODIUM BICARBONATE [Concomitant]
     Indication: PRODUCT USED FOR UNKNOWN INDICATION
     Dosage: 325 MG, UID/QD
     Route: 048
     Dates: start: 20130130
  17. VITAMIN B12                        /00056201/ [Concomitant]
     Indication: PRODUCT USED FOR UNKNOWN INDICATION
     Dosage: 100 UG, UNKNOWN/D
     Route: 065
     Dates: start: 20120707

REACTIONS (3)
  - Urinary retention [Recovering/Resolving]
  - Blood pressure increased [Recovering/Resolving]
  - Local swelling [Recovering/Resolving]
